FAERS Safety Report 21140675 (Version 3)
Quarter: 2023Q1

REPORT INFORMATION
  Report Type: Report from Study
  Country: CO (occurrence: CO)
  Receive Date: 20220728
  Receipt Date: 20230129
  Transmission Date: 20230418
  Serious: Yes (Life-Threatening, Hospitalization, Other)
  Sender: FDA-Public Use
  Company Number: CO-ABBVIE-22K-036-4484345-00

PATIENT
  Sex: Male
  Weight: 45 kg

DRUGS (2)
  1. HUMIRA [Suspect]
     Active Substance: ADALIMUMAB
     Indication: Ankylosing spondylitis
     Route: 058
     Dates: start: 20130705
  2. HUMIRA [Suspect]
     Active Substance: ADALIMUMAB

REACTIONS (22)
  - Malnutrition [Recovering/Resolving]
  - Immune system disorder [Recovered/Resolved]
  - Malnutrition [Recovering/Resolving]
  - Eating disorder [Recovering/Resolving]
  - Asthenia [Recovering/Resolving]
  - Pneumonia [Recovered/Resolved]
  - Influenza [Unknown]
  - Influenza like illness [Recovering/Resolving]
  - Pain [Not Recovered/Not Resolved]
  - Cough [Recovering/Resolving]
  - Tooth loss [Recovering/Resolving]
  - General physical health deterioration [Recovering/Resolving]
  - Bone disorder [Not Recovered/Not Resolved]
  - Weight decreased [Recovering/Resolving]
  - Fear [Recovered/Resolved]
  - Resuscitation [Recovering/Resolving]
  - Bedridden [Not Recovered/Not Resolved]
  - Ankylosing spondylitis [Not Recovered/Not Resolved]
  - Convalescent [Recovering/Resolving]
  - Diabetes mellitus [Unknown]
  - Arthritis [Not Recovered/Not Resolved]
  - Finger deformity [Recovered/Resolved]

NARRATIVE: CASE EVENT DATE: 20210101
